FAERS Safety Report 12212937 (Version 2)
Quarter: 2016Q2

REPORT INFORMATION
  Report Type: Report from Study
  Country: US (occurrence: US)
  Receive Date: 20160328
  Receipt Date: 20160427
  Transmission Date: 20160815
  Serious: No
  Sender: FDA-Public Use
  Company Number: US-AMGEN-USASL2016035518

PATIENT
  Age: 73 Year
  Sex: Female

DRUGS (1)
  1. ENBREL [Suspect]
     Active Substance: ETANERCEPT
     Indication: PSORIATIC ARTHROPATHY
     Dosage: 50 MG, QWK
     Route: 065
     Dates: start: 20110109

REACTIONS (9)
  - Pruritus [Not Recovered/Not Resolved]
  - Ear discomfort [Not Recovered/Not Resolved]
  - Drug dose omission [Unknown]
  - Anger [Unknown]
  - Underdose [Unknown]
  - Mitral valve prolapse [Not Recovered/Not Resolved]
  - Injection site urticaria [Unknown]
  - Device leakage [Unknown]
  - Hypersensitivity [Not Recovered/Not Resolved]

NARRATIVE: CASE EVENT DATE: 2016
